FAERS Safety Report 7619641-3 (Version None)
Quarter: 2011Q3

REPORT INFORMATION
  Report Type: 
  Country: None (occurrence: None)
  Receive Date: 20110719
  Receipt Date: 20110712
  Transmission Date: 20111222
  Serious: Yes (Other)
  Sender: FDA-Public Use
  Company Number: DE-JNJFOC-20110704626

PATIENT
  Age: 4 Decade
  Sex: Female

DRUGS (1)
  1. RISPERDAL [Suspect]
     Indication: BORDERLINE PERSONALITY DISORDER
     Route: 048

REACTIONS (1)
  - THROMBOPHLEBITIS SUPERFICIAL [None]
